FAERS Safety Report 8827838 (Version 2)
Quarter: 2012Q4

REPORT INFORMATION
  Report Type: 
  Country: US (occurrence: US)
  Receive Date: 20121005
  Receipt Date: 20121128
  Transmission Date: 20130627
  Serious: Yes (Other)
  Sender: FDA-Public Use
  Company Number: US-PFIZER INC-2012244245

PATIENT
  Age: 89 Year
  Sex: Female
  Weight: 68.03 kg

DRUGS (16)
  1. TOVIAZ [Suspect]
     Indication: NOCTURIA
     Dosage: 4 mg, 1x/day
     Route: 048
     Dates: start: 201205, end: 20120930
  2. TOVIAZ [Suspect]
     Indication: URINATION FREQUENCY OF
  3. HYDROCODONE [Concomitant]
     Indication: PAIN
     Dosage: 5 mg, 2x/day
  4. AMLODIPINE [Concomitant]
     Indication: BLOOD PRESSURE HIGH
     Dosage: 5 mg, Daily
     Dates: start: 20120410
  5. AMLODIPINE [Concomitant]
     Indication: INCREASED BLOOD PRESSURE
     Dosage: UNK
     Dates: start: 20120404
  6. ALEVE [Concomitant]
     Indication: PAIN
     Dosage: UNK
  7. MILK OF MAGNESIA [Concomitant]
     Indication: CONSTIPATION
     Dosage: UNK
  8. LISINOPRIL [Concomitant]
     Indication: BLOOD PRESSURE HIGH
     Dosage: 40 mg, Daily
  9. LISINOPRIL [Concomitant]
     Indication: INCREASED BLOOD PRESSURE
  10. ASPIRIN [Concomitant]
     Dosage: 8 mg, 1x/day
  11. CALTRATE [Concomitant]
     Indication: CALCIUM SUPPLEMENTATION
     Dosage: UNK
  12. VITAMIN D [Concomitant]
     Dosage: 1000 units, 3 times a day
  13. ATENOLOL [Concomitant]
     Indication: BLOOD PRESSURE ABNORMAL
     Dosage: 5 mg, 1x/day
     Dates: end: 20121001
  14. GABAPENTIN [Concomitant]
     Indication: SLEEPY
     Dosage: 100 mg, (1 to 3 variable Q 8 hours prn)
     Dates: start: 20121020
  15. GABAPENTIN [Concomitant]
     Indication: PAIN IN LIMB
  16. BYSTOLIC [Concomitant]
     Indication: INCREASED BLOOD PRESSURE
     Dosage: 5 mg, 1x/day
     Dates: start: 20121001

REACTIONS (17)
  - Bladder mass [Unknown]
  - Blood urine present [Unknown]
  - Balance disorder [Not Recovered/Not Resolved]
  - Gait disturbance [Not Recovered/Not Resolved]
  - Walking aid user [Not Recovered/Not Resolved]
  - Feeling abnormal [Not Recovered/Not Resolved]
  - Nocturia [Not Recovered/Not Resolved]
  - Dysuria [Not Recovered/Not Resolved]
  - Pain in extremity [Not Recovered/Not Resolved]
  - Neck pain [Recovered/Resolved]
  - Fatigue [Not Recovered/Not Resolved]
  - Hypoaesthesia [Not Recovered/Not Resolved]
  - Paraesthesia [Not Recovered/Not Resolved]
  - Joint swelling [Not Recovered/Not Resolved]
  - Muscle tightness [Not Recovered/Not Resolved]
  - Limb discomfort [Not Recovered/Not Resolved]
  - Drug ineffective [Not Recovered/Not Resolved]
